FAERS Safety Report 25161183 (Version 1)
Quarter: 2025Q2

REPORT INFORMATION
  Report Type: Spontaneous
  Country: FR (occurrence: FR)
  Receive Date: 20250404
  Receipt Date: 20250404
  Transmission Date: 20250717
  Serious: Yes (Death, Hospitalization)
  Sender: TEVA
  Company Number: None

PATIENT
  Age: 84 Year
  Sex: Female

DRUGS (12)
  1. ARIPIPRAZOLE [Suspect]
     Active Substance: ARIPIPRAZOLE
     Indication: Medication error
     Route: 048
     Dates: start: 20240911, end: 20240911
  2. NICARDIPINE HYDROCHLORIDE [Suspect]
     Active Substance: NICARDIPINE HYDROCHLORIDE
     Indication: Medication error
     Route: 048
     Dates: start: 20240911, end: 20240911
  3. LOXAPINE [Suspect]
     Active Substance: LOXAPINE
     Indication: Medication error
     Route: 048
     Dates: start: 20240911, end: 20240911
  4. PERINDOPRIL [Suspect]
     Active Substance: PERINDOPRIL
     Indication: Medication error
     Route: 048
     Dates: start: 20240911, end: 20240911
  5. MINERAL OIL [Suspect]
     Active Substance: MINERAL OIL
     Indication: Medication error
     Route: 048
     Dates: start: 20240911, end: 20240911
  6. HYDROCHLOROTHIAZIDE [Suspect]
     Active Substance: HYDROCHLOROTHIAZIDE
     Indication: Medication error
     Route: 048
     Dates: start: 20240911, end: 20240911
  7. PANTOPRAZOLE [Suspect]
     Active Substance: PANTOPRAZOLE
     Indication: Medication error
     Route: 048
     Dates: start: 20240911, end: 20240911
  8. POLYETHYLENE GLYCOL 4000 [Suspect]
     Active Substance: POLYETHYLENE GLYCOL 4000
     Indication: Medication error
     Route: 048
     Dates: start: 20240911, end: 20240911
  9. RILMENIDINE [Suspect]
     Active Substance: RILMENIDINE
     Indication: Medication error
     Route: 048
     Dates: start: 20240911, end: 20240911
  10. PHLOROGLUCINOL [Suspect]
     Active Substance: PHLOROGLUCINOL
     Indication: Medication error
     Route: 048
     Dates: start: 20240911, end: 20240911
  11. PREGABALIN [Suspect]
     Active Substance: PREGABALIN
     Indication: Medication error
     Route: 048
     Dates: start: 20240911, end: 20240911
  12. LAMOTRIGINE [Suspect]
     Active Substance: LAMOTRIGINE
     Indication: Medication error
     Route: 048
     Dates: start: 20240911, end: 20240911

REACTIONS (4)
  - Pneumonia aspiration [Fatal]
  - Vomiting [Recovered/Resolved]
  - Product administration error [Fatal]
  - Wrong patient [Fatal]

NARRATIVE: CASE EVENT DATE: 20240911
